FAERS Safety Report 23657514 (Version 1)
Quarter: 2024Q1

REPORT INFORMATION
  Report Type: Spontaneous
  Country: US (occurrence: US)
  Receive Date: 20240321
  Receipt Date: 20240321
  Transmission Date: 20240410
  Serious: No
  Sender: FDA-Public Use
  Company Number: US-PFIZER INC-202400059258

PATIENT
  Age: 69 Year
  Sex: Female
  Weight: 90.72 kg

DRUGS (1)
  1. SOLU-CORTEF [Suspect]
     Active Substance: HYDROCORTISONE SODIUM SUCCINATE
     Indication: Hormone level abnormal
     Dosage: 100 MG
     Route: 042

REACTIONS (2)
  - Weight increased [Unknown]
  - Off label use [Unknown]
